FAERS Safety Report 7248607-0 (Version None)
Quarter: 2011Q1

REPORT INFORMATION
  Report Type: 
  Country: None (occurrence: None)
  Receive Date: 20110128
  Receipt Date: 20110103
  Transmission Date: 20110831
  Serious: Yes (Death)
  Sender: FDA-Public Use
  Company Number: US-BAYER-2011-001471

PATIENT
  Age: 47 Year
  Sex: Female

DRUGS (5)
  1. METHADONE [Suspect]
     Indication: PRODUCT USED FOR UNKNOWN INDICATION
     Route: 048
  2. PROCET [HYDROCODONE,PARACETAMOL] [Suspect]
     Indication: PRODUCT USED FOR UNKNOWN INDICATION
     Route: 048
  3. TRAMADOL HCL [Suspect]
     Route: 048
  4. NAPROXEN SODIUM ({= 220 MG) [Suspect]
     Indication: PRODUCT USED FOR UNKNOWN INDICATION
     Route: 048
  5. DIAZEPAM [Suspect]
     Route: 048

REACTIONS (3)
  - CARDIAC ARREST [None]
  - RESPIRATORY ARREST [None]
  - TOXICITY TO VARIOUS AGENTS [None]
